FAERS Safety Report 25691530 (Version 3)
Quarter: 2025Q3

REPORT INFORMATION
  Report Type: Spontaneous
  Country: US (occurrence: US)
  Receive Date: 20250818
  Receipt Date: 20250908
  Transmission Date: 20251021
  Serious: No
  Sender: IPSEN BIOPHARMACEUTICALS, INC.
  Company Number: US-IPSEN Group, Research and Development-2025-20191

PATIENT

DRUGS (3)
  1. DYSPORT [Suspect]
     Active Substance: ABOBOTULINUMTOXINA
     Indication: Skin wrinkling
  2. DYSPORT [Suspect]
     Active Substance: ABOBOTULINUMTOXINA
     Indication: Skin wrinkling
  3. DYSPORT [Suspect]
     Active Substance: ABOBOTULINUMTOXINA
     Indication: Skin wrinkling

REACTIONS (12)
  - Throat tightness [Unknown]
  - Panic attack [Unknown]
  - Chest discomfort [Unknown]
  - Eyelid ptosis [Unknown]
  - Vision blurred [Unknown]
  - Dizziness [Unknown]
  - Head discomfort [Unknown]
  - Chest discomfort [Unknown]
  - Influenza [Unknown]
  - Fatigue [Unknown]
  - Dysphagia [Unknown]
  - Off label use [Unknown]

NARRATIVE: CASE EVENT DATE: 20250805
